FAERS Safety Report 6730307-4 (Version None)
Quarter: 2010Q2

REPORT INFORMATION
  Report Type: 
  Country: None (occurrence: None)
  Receive Date: 20100513
  Receipt Date: 20100504
  Transmission Date: 20101027
  Serious: Yes (Hospitalization, Disabling)
  Sender: FDA-Public Use
  Company Number: SP02906

PATIENT
  Age: 62 Year
  Sex: Female

DRUGS (6)
  1. COLAZAL [Suspect]
     Indication: COLITIS ULCERATIVE
     Dosage: 6750 MG (2250 MG, 3 IN 1 D), ORAL
     Route: 048
     Dates: end: 20100429
  2. FLUCONAZOLE [Suspect]
     Indication: COLITIS ULCERATIVE
     Dosage: 100 MG (100 MG, 1 IN 1 D), ORAL
     Route: 048
     Dates: start: 20100413, end: 20100429
  3. PREDNISONE [Concomitant]
  4. IBANDRONATE SODIUM (TABLETS) [Concomitant]
  5. VITAMIN B12 (TABLETS) [Concomitant]
  6. CALCIUM (TABLETS) [Concomitant]

REACTIONS (6)
  - ABDOMINAL PAIN [None]
  - AUTOIMMUNE DISORDER [None]
  - LEUKOPENIA [None]
  - PYREXIA [None]
  - VIRAL INFECTION [None]
  - WEIGHT DECREASED [None]
